FAERS Safety Report 6828375-4 (Version None)
Quarter: 2010Q3

REPORT INFORMATION
  Report Type: 
  Country: None (occurrence: None)
  Receive Date: 20100709
  Receipt Date: 20070207
  Transmission Date: 20110219
  Serious: No
  Sender: FDA-Public Use
  Company Number: US-PFIZER INC-2007009917

PATIENT
  Sex: Female

DRUGS (1)
  1. CHANTIX [Suspect]
     Indication: SMOKING CESSATION THERAPY
     Dates: start: 20070204, end: 20070205

REACTIONS (7)
  - ABNORMAL DREAMS [None]
  - AGITATION [None]
  - BACK PAIN [None]
  - HEADACHE [None]
  - INSOMNIA [None]
  - NECK MASS [None]
  - PYREXIA [None]
